APPROVED DRUG PRODUCT: TRIAMCINOLONE ACETONIDE
Active Ingredient: TRIAMCINOLONE ACETONIDE
Strength: 0.1%
Dosage Form/Route: LOTION;TOPICAL
Application: A040672 | Product #002 | TE Code: AT
Applicant: MICRO LABS LTD
Approved: Dec 13, 2006 | RLD: No | RS: No | Type: RX